FAERS Safety Report 7339820-2 (Version None)
Quarter: 2011Q1

REPORT INFORMATION
  Report Type: 
  Country: None (occurrence: None)
  Receive Date: 20110304
  Receipt Date: 20110304
  Transmission Date: 20110831
  Serious: Yes (Hospitalization, Disabling)
  Sender: FDA-Public Use
  Company Number: None

PATIENT
  Age: 52 Year
  Sex: Female
  Weight: 152 kg

DRUGS (2)
  1. WARFARIN SODIUM [Concomitant]
  2. ENOXAPARIN [Suspect]
     Indication: ATRIAL FIBRILLATION
     Dosage: 150 MG Q12H SQ
     Dates: start: 20100922, end: 20100924

REACTIONS (4)
  - TACHYCARDIA [None]
  - WOUND DEHISCENCE [None]
  - HAEMORRHAGE [None]
  - HYPOTENSION [None]
